FAERS Safety Report 5732806-0 (Version None)
Quarter: 2008Q2

REPORT INFORMATION
  Report Type: 
  Country: None (occurrence: None)
  Receive Date: 20080507
  Receipt Date: 20080507
  Transmission Date: 20081010
  Serious: Yes (Death)
  Sender: FDA-Public Use
  Company Number: None

PATIENT
  Sex: Female
  Weight: 57.1532 kg

DRUGS (3)
  1. VINORELBINE [Suspect]
     Indication: ADENOCARCINOMA
     Dosage: 25 MG/M2 D 1, 8, 15 Q 28 D IV
     Route: 042
     Dates: start: 20080131
  2. VINORELBINE [Suspect]
     Indication: METASTASIS
     Dosage: 25 MG/M2 D 1, 8, 15 Q 28 D IV
     Route: 042
     Dates: start: 20080131
  3. LAPATINIB [Suspect]
     Dosage: 1500MG DAILY P.O.
     Route: 048
     Dates: start: 20080131, end: 20080205

REACTIONS (4)
  - CONFUSIONAL STATE [None]
  - FATIGUE [None]
  - HYPOPHOSPHATAEMIA [None]
  - URINARY INCONTINENCE [None]
